FAERS Safety Report 5283380-7 (Version None)
Quarter: 2007Q1

REPORT INFORMATION
  Report Type: 
  Country: None (occurrence: None)
  Receive Date: 20061226
  Receipt Date: 20051130
  Transmission Date: 20070707
  Serious: Yes (Hospitalization)
  Sender: FDA-Public Use
  Company Number: WAES 0512USA00321

PATIENT
  Sex: Male

DRUGS (3)
  1. ZETIA [Suspect]
     Dosage: 10 MG/PO
     Route: 048
  2. [THERAPY UNSPECIFIED] UNK [Suspect]
  3. CLARITIN-D [Concomitant]

REACTIONS (1)
  - ANGIOEDEMA [None]
